FAERS Safety Report 6689351-8 (Version None)
Quarter: 2010Q2

REPORT INFORMATION
  Report Type: 
  Country: None (occurrence: None)
  Receive Date: 20100419
  Receipt Date: 20100419
  Transmission Date: 20101027
  Serious: Yes (Other)
  Sender: FDA-Public Use
  Company Number: None

PATIENT
  Age: 65 Year
  Sex: Female
  Weight: 68.4932 kg

DRUGS (10)
  1. CYCLOBENZAPRINE [Suspect]
     Indication: MUSCLE SPASMS
     Dosage: 5 MG 3X/DAY FOR 3 DAYS PO, 5MG AT BEDTIME FOR 3 D PO
     Route: 048
     Dates: start: 20100408, end: 20100415
  2. CYCLOBENZAPRINE [Suspect]
     Indication: NECK PAIN
     Dosage: 5 MG 3X/DAY FOR 3 DAYS PO, 5MG AT BEDTIME FOR 3 D PO
     Route: 048
     Dates: start: 20100408, end: 20100415
  3. BIAXIN [Concomitant]
  4. ATENOLOL [Concomitant]
  5. NORVASC [Concomitant]
  6. ELMIRON [Concomitant]
  7. LIQUID GAMMAGARD [Concomitant]
  8. PREDNISONE TAB [Concomitant]
  9. ALTACE [Concomitant]
  10. MEPHYTON [Concomitant]

REACTIONS (3)
  - DEPRESSION [None]
  - DIARRHOEA [None]
  - PRODUCT SUBSTITUTION ISSUE [None]
